FAERS Safety Report 5073270-7 (Version None)
Quarter: 2006Q3

REPORT INFORMATION
  Report Type: 
  Country: None (occurrence: None)
  Receive Date: 20060808
  Receipt Date: 20060725
  Transmission Date: 20061208
  Serious: Yes (Other)
  Sender: FDA-Public Use
  Company Number: JP-BRISTOL-MYERS SQUIBB COMPANY-13462189

PATIENT
  Age: 78 Year
  Sex: Female

DRUGS (7)
  1. SINEMET [Suspect]
     Route: 048
     Dates: start: 20060715, end: 20060726
  2. MAINTATE [Concomitant]
  3. MAGNESIUM OXIDE [Concomitant]
  4. GASTROM [Concomitant]
  5. ESTAZOLAM [Concomitant]
  6. DEPAS [Concomitant]
  7. ASPIRIN [Concomitant]

REACTIONS (5)
  - DELIRIUM [None]
  - DEMENTIA [None]
  - HALLUCINATION, AUDITORY [None]
  - HYPERTONIA [None]
  - TONGUE BLACK HAIRY [None]
